FAERS Safety Report 6086216-X (Version None)
Quarter: 2009Q1

REPORT INFORMATION
  Report Type: 
  Country: None (occurrence: None)
  Receive Date: 20090218
  Receipt Date: 20090218
  Transmission Date: 20090719
  Serious: Yes (Other)
  Sender: FDA-Public Use
  Company Number: None

PATIENT
  Age: 17 Year
  Sex: Female
  Weight: 53.0709 kg

DRUGS (1)
  1. OCELLA 3MG/0.03MG BARR [Suspect]
     Indication: PREMENSTRUAL SYNDROME
     Dosage: ONE DAILY PO
     Route: 048
     Dates: start: 20090202

REACTIONS (20)
  - ABNORMAL BEHAVIOUR [None]
  - ACTIVITIES OF DAILY LIVING IMPAIRED [None]
  - ANOREXIA [None]
  - ARRHYTHMIA [None]
  - ASTHENIA [None]
  - BREAST PAIN [None]
  - BREAST SWELLING [None]
  - DISTURBANCE IN ATTENTION [None]
  - DIZZINESS [None]
  - EDUCATIONAL PROBLEM [None]
  - HEADACHE [None]
  - MALAISE [None]
  - MUSCLE SPASMS [None]
  - NAUSEA [None]
  - OROPHARYNGEAL PAIN [None]
  - PALLOR [None]
  - PRURITUS [None]
  - PYREXIA [None]
  - SWELLING FACE [None]
  - URINARY TRACT INFECTION [None]
